FAERS Safety Report 16633092 (Version 2)
Quarter: 2019Q3

REPORT INFORMATION
  Report Type: Spontaneous
  Country: US (occurrence: US)
  Receive Date: 20190725
  Receipt Date: 20190807
  Transmission Date: 20191004
  Serious: No
  Sender: FDA-Public Use
  Company Number: US-RECORDATI RARE DISEASES INC.-US-R13005-19-00200

PATIENT

DRUGS (1)
  1. TRANXENE [Suspect]
     Active Substance: CLORAZEPATE DIPOTASSIUM
     Indication: PRODUCT USED FOR UNKNOWN INDICATION
     Route: 065

REACTIONS (12)
  - Dizziness [Unknown]
  - Withdrawal syndrome [Unknown]
  - Myalgia [Unknown]
  - Confusional state [Unknown]
  - Nausea [Unknown]
  - Product availability issue [Unknown]
  - Insomnia [Unknown]
  - Pain [Unknown]
  - Headache [Unknown]
  - Somnolence [Unknown]
  - Tinnitus [Unknown]
  - Vision blurred [Unknown]
